FAERS Safety Report 14342710 (Version 2)
Quarter: 2020Q2

REPORT INFORMATION
  Report Type: Report from Study
  Country: IL (occurrence: IL)
  Receive Date: 20180102
  Receipt Date: 20200630
  Transmission Date: 20200713
  Serious: Yes (Hospitalization, Other)
  Sender: FDA-Public Use
  Company Number: IL-ACTELION-A-CH2017-164686

PATIENT
  Age: 71 Year
  Sex: Female

DRUGS (10)
  1. COUMADIN [Concomitant]
     Active Substance: WARFARIN SODIUM
  2. FUSID [Concomitant]
  3. ALDACTONE [Concomitant]
     Active Substance: SPIRONOLACTONE
  4. UPTRAVI [Suspect]
     Active Substance: SELEXIPAG
     Indication: PULMONARY ARTERIAL HYPERTENSION
     Dosage: 1600 MCG, BID
     Route: 048
     Dates: start: 20170606
  5. SLOW K [Concomitant]
     Active Substance: POTASSIUM CHLORIDE
  6. FOLIC ACID. [Concomitant]
     Active Substance: FOLIC ACID
  7. VITAMIN B12 [Concomitant]
     Active Substance: CYANOCOBALAMIN
  8. VITAMIN D [Concomitant]
     Active Substance: VITAMIN D NOS
  9. REVATIO [Concomitant]
     Active Substance: SILDENAFIL CITRATE
  10. VOLIBRIS [Concomitant]
     Active Substance: AMBRISENTAN

REACTIONS (9)
  - Dyspnoea exertional [Recovering/Resolving]
  - Deep vein thrombosis [Unknown]
  - Occult blood positive [Not Recovered/Not Resolved]
  - Haemoglobin decreased [Recovering/Resolving]
  - Anaemia [Recovering/Resolving]
  - Packed red blood cell transfusion [Unknown]
  - Syncope [Unknown]
  - Oedema peripheral [Recovering/Resolving]
  - Blood iron decreased [Recovering/Resolving]

NARRATIVE: CASE EVENT DATE: 201711
